FAERS Safety Report 8186424-8 (Version None)
Quarter: 2012Q1

REPORT INFORMATION
  Report Type: 
  Country: None (occurrence: None)
  Receive Date: 20120305
  Receipt Date: 20120305
  Transmission Date: 20120608
  Serious: Yes (Other)
  Sender: FDA-Public Use
  Company Number: None

PATIENT
  Age: 76 Year
  Sex: Male
  Weight: 81.6475 kg

DRUGS (1)
  1. DURAGESIC-75 [Suspect]
     Indication: PRODUCT QUALITY ISSUE
     Dosage: 1 PATCH 1/PATCH/72 HR
     Dates: start: 20120115

REACTIONS (2)
  - WITHDRAWAL SYNDROME [None]
  - PRODUCT QUALITY ISSUE [None]
